FAERS Safety Report 20571845 (Version 1)
Quarter: 2022Q1

REPORT INFORMATION
  Report Type: Report from Study
  Country: US (occurrence: US)
  Receive Date: 20220309
  Receipt Date: 20220309
  Transmission Date: 20220423
  Serious: No
  Sender: FDA-Public Use
  Company Number: US-TAKEDA-2022TUS015152

PATIENT
  Sex: Male
  Weight: 88.435 kg

DRUGS (16)
  1. HUMAN IMMUNOGLOBULIN G [Suspect]
     Active Substance: HUMAN IMMUNOGLOBULIN G
     Indication: Renal transplant
     Dosage: 40 GRAM, Q2WEEKS
     Route: 042
     Dates: start: 20220107
  2. HUMAN IMMUNOGLOBULIN G [Suspect]
     Active Substance: HUMAN IMMUNOGLOBULIN G
     Indication: Kidney transplant rejection
  3. ACETAMINOPHEN [Concomitant]
     Active Substance: ACETAMINOPHEN
  4. DIPHENHYDRAMINE [Concomitant]
     Active Substance: DIPHENHYDRAMINE
  5. FUROSEMIDE [Concomitant]
     Active Substance: FUROSEMIDE
  6. SODIUM CHLORIDE [Concomitant]
     Active Substance: SODIUM CHLORIDE
  7. EPINEPHRINE [Concomitant]
     Active Substance: EPINEPHRINE
  8. SOLU-MEDROL [Concomitant]
     Active Substance: METHYLPREDNISOLONE SODIUM SUCCINATE
  9. Lmx [Concomitant]
  10. CARVEDILOL [Concomitant]
     Active Substance: CARVEDILOL
  11. NIFEDIPINE [Concomitant]
     Active Substance: NIFEDIPINE
  12. BUMETANIDE [Concomitant]
     Active Substance: BUMETANIDE
  13. CLONIDINE [Concomitant]
     Active Substance: CLONIDINE
  14. MYCOPHENOLIC ACID [Concomitant]
     Active Substance: MYCOPHENOLIC ACID
  15. VITAMINS [Concomitant]
     Active Substance: VITAMINS
  16. TACROLIMUS [Concomitant]
     Active Substance: TACROLIMUS

REACTIONS (2)
  - Blood creatinine increased [Unknown]
  - Off label use [Unknown]
